FAERS Safety Report 16248077 (Version 1)
Quarter: 2019Q2

REPORT INFORMATION
  Report Type: Report from Study
  Country: IN (occurrence: IN)
  Receive Date: 20190428
  Receipt Date: 20190428
  Transmission Date: 20190711
  Serious: Yes (Death, Other)
  Sender: FDA-Public Use
  Company Number: PHHY2019IN096364

PATIENT
  Age: 76 Year
  Sex: Male
  Weight: 64 kg

DRUGS (1)
  1. VYMADA [Suspect]
     Active Substance: SACUBITRIL\VALSARTAN
     Indication: CARDIAC FAILURE
     Route: 048

REACTIONS (8)
  - Blood pressure decreased [Fatal]
  - Fluid retention [Fatal]
  - Cardiomegaly [Fatal]
  - Blood creatinine increased [Unknown]
  - Paralysis [Unknown]
  - Gastrooesophageal reflux disease [Unknown]
  - Heart rate decreased [Fatal]
  - Oropharyngeal pain [Unknown]
